FAERS Safety Report 11344038 (Version 1)
Quarter: 2015Q3

REPORT INFORMATION
  Report Type: Spontaneous
  Country: US (occurrence: None)
  Receive Date: 20150804
  Receipt Date: 20150804
  Transmission Date: 20151125
  Serious: Yes (Hospitalization)
  Sender: FDA-Public Use
  Company Number: None

PATIENT
  Age: 56 Year
  Sex: Female
  Weight: 90.5 kg

DRUGS (16)
  1. GLUCOPHAGE [Concomitant]
     Active Substance: METFORMIN HYDROCHLORIDE
  2. KLONOPIN [Concomitant]
     Active Substance: CLONAZEPAM
  3. PLAVIX [Concomitant]
     Active Substance: CLOPIDOGREL BISULFATE
  4. NORVASC [Concomitant]
     Active Substance: AMLODIPINE BESYLATE
  5. VASOTEC [Concomitant]
     Active Substance: ENALAPRIL MALEATE
  6. NEXIUM [Concomitant]
     Active Substance: ESOMEPRAZOLE MAGNESIUM
  7. LOPRESSOR [Concomitant]
     Active Substance: METOPROLOL TARTRATE
  8. LANTUS [Concomitant]
     Active Substance: INSULIN GLARGINE
  9. LOVASTATIN. [Concomitant]
     Active Substance: LOVASTATIN
  10. LYRICA [Concomitant]
     Active Substance: PREGABALIN
  11. ASPIRIN 81 MG [Concomitant]
     Active Substance: ASPIRIN
  12. ENTYVIO [Suspect]
     Active Substance: VEDOLIZUMAB
     Indication: COLITIS ULCERATIVE
     Dosage: ONCE EVERY 2 WEEKS
     Route: 042
     Dates: start: 20150505, end: 20150519
  13. NORCO [Concomitant]
     Active Substance: ACETAMINOPHEN\HYDROCODONE BITARTRATE
  14. MULTIVITAMIN ASACOL [Concomitant]
  15. INVOKANA [Concomitant]
     Active Substance: CANAGLIFLOZIN
  16. NOVOLOG [Concomitant]
     Active Substance: INSULIN ASPART

REACTIONS (8)
  - Abdominal pain [None]
  - Haematochezia [None]
  - Clostridium test positive [None]
  - Bradycardia [None]
  - Procedural complication [None]
  - Salmonella test positive [None]
  - Hepatic enzyme increased [None]
  - Hypotension [None]

NARRATIVE: CASE EVENT DATE: 20150527
